FAERS Safety Report 13289145 (Version 7)
Quarter: 2018Q1

REPORT INFORMATION
  Report Type: Report from Study
  Country: US (occurrence: US)
  Receive Date: 20170302
  Receipt Date: 20180121
  Transmission Date: 20180508
  Serious: Yes (Hospitalization, Other)
  Sender: FDA-Public Use
  Company Number: PHEH2017US006348

PATIENT
  Age: 70 Year
  Sex: Female

DRUGS (6)
  1. MYFORTIC [Suspect]
     Active Substance: MYCOPHENOLATE SODIUM
     Dosage: 720 MG, BID
     Route: 048
  2. NEORAL [Suspect]
     Active Substance: CYCLOSPORINE
     Dosage: 75 MG, BID
     Route: 048
  3. NEORAL [Suspect]
     Active Substance: CYCLOSPORINE
     Indication: RENAL TRANSPLANT
     Dosage: 75 MG, BID
     Route: 048
  4. MYFORTIC [Suspect]
     Active Substance: MYCOPHENOLATE SODIUM
     Dosage: 360 MG, BID
     Route: 048
  5. MYFORTIC [Suspect]
     Active Substance: MYCOPHENOLATE SODIUM
     Indication: RENAL TRANSPLANT
     Dosage: 360 MG, BID
     Route: 048
  6. NEORAL [Suspect]
     Active Substance: CYCLOSPORINE
     Dosage: 50 MG, BID
     Route: 048
     Dates: start: 20170714

REACTIONS (18)
  - Oropharyngeal pain [Unknown]
  - Atrial fibrillation [Unknown]
  - Pneumonia [Unknown]
  - Chills [Unknown]
  - Loss of consciousness [Unknown]
  - Somnolence [Unknown]
  - Pericardial effusion [Unknown]
  - Seizure [Recovered/Resolved]
  - Headache [Unknown]
  - Hyponatraemia [Unknown]
  - Malaise [Unknown]
  - Body temperature increased [Recovering/Resolving]
  - Fluid retention [Unknown]
  - Urinary tract infection [Recovering/Resolving]
  - Pyrexia [Unknown]
  - Cardiac failure congestive [Unknown]
  - Diarrhoea [Recovering/Resolving]
  - Dehydration [Recovering/Resolving]

NARRATIVE: CASE EVENT DATE: 20170313
